FAERS Safety Report 9301547 (Version 4)
Quarter: 2015Q3

REPORT INFORMATION
  Report Type: Spontaneous
  Country: US (occurrence: US)
  Receive Date: 20130521
  Receipt Date: 20150929
  Transmission Date: 20151125
  Serious: No
  Sender: FDA-Public Use
  Company Number: US-009507513-1305USA010166

PATIENT
  Sex: Male
  Weight: 75.28 kg

DRUGS (6)
  1. FINPECIA [Suspect]
     Active Substance: FINASTERIDE
     Indication: ALOPECIA
     Dosage: 1 MG, UNKNOWN
     Route: 065
     Dates: start: 201104, end: 201111
  2. PROPECIA [Suspect]
     Active Substance: FINASTERIDE
     Dosage: 1 MG, QD
     Route: 048
     Dates: start: 2012
  3. FINPECIA [Suspect]
     Active Substance: FINASTERIDE
     Dosage: 1 MG, UNKNOWN
     Route: 065
     Dates: start: 201206, end: 2012
  4. PROPECIA [Suspect]
     Active Substance: FINASTERIDE
     Indication: ALOPECIA
     Dosage: 1 MG, UNKNOWN
     Route: 048
     Dates: start: 20040827, end: 200607
  5. FINASTERIDE. [Suspect]
     Active Substance: FINASTERIDE
     Dosage: 1 MG, UNKNOWN
     Route: 065
     Dates: start: 201203, end: 201206
  6. FINASTERIDE. [Suspect]
     Active Substance: FINASTERIDE
     Indication: ALOPECIA
     Dosage: 1 MG, UNKNOWN
     Route: 048
     Dates: start: 200607, end: 201104

REACTIONS (6)
  - Erectile dysfunction [Not Recovered/Not Resolved]
  - Inguinal hernia repair [Unknown]
  - Depression [Not Recovered/Not Resolved]
  - Anxiety [Not Recovered/Not Resolved]
  - Erectile dysfunction [Not Recovered/Not Resolved]
  - Sexual dysfunction [Not Recovered/Not Resolved]

NARRATIVE: CASE EVENT DATE: 200411
